FAERS Safety Report 7483350-4 (Version None)
Quarter: 2011Q2

REPORT INFORMATION
  Report Type: 
  Country: None (occurrence: None)
  Receive Date: 20110517
  Receipt Date: 20110114
  Transmission Date: 20111010
  Serious: Yes (Hospitalization, Other)
  Sender: FDA-Public Use
  Company Number: US-BAYER-201038350NA

PATIENT
  Age: 22 Year
  Sex: Female
  Weight: 90.249 kg

DRUGS (9)
  1. IBUPROFEN [Concomitant]
     Dosage: UNK UNK, CONT
     Dates: start: 20080307
  2. ULTRAM [Concomitant]
  3. YAZ [Suspect]
  4. I.V. SOLUTIONS [Concomitant]
  5. ZOSYN [Concomitant]
  6. PRENATAL VITAMINS [Concomitant]
  7. YAZ [Suspect]
     Indication: ORAL CONTRACEPTION
     Route: 048
     Dates: start: 20071101, end: 20080301
  8. YASMIN [Suspect]
     Indication: ORAL CONTRACEPTION
     Dosage: UNK
     Dates: start: 20080201, end: 20080301
  9. ANALGESICS [Concomitant]

REACTIONS (9)
  - POST CHOLECYSTECTOMY SYNDROME [None]
  - MUSCULOSKELETAL CHEST PAIN [None]
  - JAUNDICE [None]
  - PAIN [None]
  - ABDOMINAL PAIN UPPER [None]
  - CHOLECYSTITIS CHRONIC [None]
  - NAUSEA [None]
  - PANCREATITIS [None]
  - VOMITING [None]
